FAERS Safety Report 5073776-0 (Version None)
Quarter: 2006Q3

REPORT INFORMATION
  Report Type: 
  Country: None (occurrence: None)
  Receive Date: 20060803
  Receipt Date: 20060721
  Transmission Date: 20061208
  Serious: Yes (Death, Life-Threatening, Hospitalization)
  Sender: FDA-Public Use
  Company Number: 2006042216

PATIENT
  Age: 74 Year
  Sex: Male
  Weight: 40 kg

DRUGS (6)
  1. VFEND [Suspect]
     Indication: ASPERGILLOSIS
     Dosage: 4 MG/KG (2 MG/KG, 2 IN 1 D), INTRAVENOUS
     Route: 042
     Dates: start: 20060320, end: 20060510
  2. MEROPEN (MEROPENEM) [Suspect]
     Indication: INFECTION
     Dosage: 1 GRAM (0.5 GRAM, 2 IN 1 D), INTRAVENOUS
     Route: 042
     Dates: start: 20060320, end: 20060402
  3. MICAFUNGIN (MICAFUNGIN) [Concomitant]
  4. ITRACONAZOLE [Concomitant]
  5. LOXONIN (LOXOPROFEN SODIUM) [Concomitant]
  6. MUCOSTA (REBAMIPIDE) [Concomitant]

REACTIONS (12)
  - AORTIC ANEURYSM RUPTURE [None]
  - ARRHYTHMIA [None]
  - BACK PAIN [None]
  - CARDIAC DISORDER [None]
  - CARDIO-RESPIRATORY ARREST [None]
  - DELIRIUM [None]
  - HYPOXIA [None]
  - HYPOXIC ENCEPHALOPATHY [None]
  - MALAISE [None]
  - MYOCARDIAL INFARCTION [None]
  - OBSTRUCTIVE AIRWAYS DISORDER [None]
  - PHOTOPHOBIA [None]
